FAERS Safety Report 9769199 (Version 1)
Quarter: 2013Q4

REPORT INFORMATION
  Report Type: Spontaneous
  Country: GB (occurrence: GB)
  Receive Date: 20131218
  Receipt Date: 20131218
  Transmission Date: 20140711
  Serious: Yes (Other)
  Sender: FDA-Public Use
  Company Number: GB-RANBAXY-2013R1-75995

PATIENT
  Age: 24 Month
  Sex: Female

DRUGS (4)
  1. CO-AMOXICLAV [Suspect]
     Indication: PRODUCT USED FOR UNKNOWN INDICATION
     Route: 065
  2. PHENOXYMETHYLPENICILLIN [Concomitant]
     Indication: PRODUCT USED FOR UNKNOWN INDICATION
     Dosage: UNK
     Route: 065
     Dates: start: 20130816, end: 20130823
  3. PHENOXYMETHYLPENICILLIN [Concomitant]
     Dosage: UNK
     Route: 065
     Dates: start: 20130827, end: 20130906
  4. DAKTARIN [Concomitant]
     Indication: PRODUCT USED FOR UNKNOWN INDICATION
     Dosage: UNK
     Route: 065
     Dates: start: 20130927, end: 20130928

REACTIONS (1)
  - Lip swelling [Recovered/Resolved]
